FAERS Safety Report 9194065 (Version 1)
Quarter: 2013Q1

REPORT INFORMATION
  Report Type: Spontaneous
  Country: FR (occurrence: FR)
  Receive Date: 20130327
  Receipt Date: 20130327
  Transmission Date: 20140127
  Serious: Yes (Hospitalization)
  Sender: FDA-Public Use
  Company Number: FR-PFIZER INC-2013092450

PATIENT
  Age: 48 Year
  Sex: Male

DRUGS (9)
  1. REVATIO [Suspect]
     Indication: PULMONARY ARTERIAL HYPERTENSION
     Dosage: 20 MG, 3X/DAY
     Route: 048
     Dates: start: 20110113
  2. TRACLEER [Interacting]
     Indication: PULMONARY ARTERIAL HYPERTENSION
     Dosage: 62.5 MG, 2X/DAY
     Route: 048
     Dates: start: 20071116
  3. TRACLEER [Interacting]
     Dosage: 125 MG, 2X/DAY
     Route: 048
     Dates: start: 200712, end: 20111215
  4. PREVISCAN [Concomitant]
  5. ALDALIX [Concomitant]
  6. CRESTOR [Concomitant]
  7. LEVOTHYROX [Concomitant]
  8. BI-TILDIEM [Concomitant]
  9. KARDEGIC [Concomitant]

REACTIONS (3)
  - Drug interaction [Recovered/Resolved]
  - Hepatocellular injury [Recovered/Resolved]
  - Cholestasis [Recovered/Resolved]
